FAERS Safety Report 16361705 (Version 2)
Quarter: 2019Q2

REPORT INFORMATION
  Report Type: Spontaneous
  Country: US (occurrence: US)
  Receive Date: 20190528
  Receipt Date: 20190626
  Transmission Date: 20190711
  Serious: Yes (Other)
  Sender: FDA-Public Use
  Company Number: US-APOTEX-2018AP027895

PATIENT

DRUGS (1)
  1. TRIAMTERENE AND HYDROCHLOROTHIAZIDE [Suspect]
     Active Substance: HYDROCHLOROTHIAZIDE\TRIAMTERENE
     Indication: HYPERTENSION
     Dosage: UNK
     Route: 065
     Dates: end: 20190318

REACTIONS (11)
  - Arthralgia [Recovering/Resolving]
  - Blood electrolytes decreased [Recovering/Resolving]
  - Inflammation [Recovering/Resolving]
  - Condition aggravated [Recovering/Resolving]
  - Drug ineffective [Unknown]
  - Premature ageing [Recovering/Resolving]
  - Product substitution issue [Unknown]
  - Skin disorder [Recovering/Resolving]
  - Renal disorder [Recovering/Resolving]
  - Pollakiuria [Recovered/Resolved]
  - Dehydration [Recovering/Resolving]
